FAERS Safety Report 7396847-2 (Version None)
Quarter: 2011Q2

REPORT INFORMATION
  Report Type: 
  Country: None (occurrence: None)
  Receive Date: 20110406
  Receipt Date: 20110324
  Transmission Date: 20111010
  Serious: Yes (Other)
  Sender: FDA-Public Use
  Company Number: US-CELGENEUS-163-21880-11013054

PATIENT
  Sex: Female

DRUGS (11)
  1. REVLIMID [Suspect]
     Indication: MULTIPLE MYELOMA
     Dosage: 25 MILLIGRAM
     Route: 048
     Dates: start: 20081101
  2. DEXAMETHASONE [Concomitant]
     Dosage: 40 MILLIGRAM
     Route: 048
  3. LEVOTHYROXINE SODIUM [Concomitant]
     Dosage: 25 MICROGRAM
     Route: 048
  4. LISINOPRIL [Concomitant]
     Dosage: 10 MILLIGRAM
     Route: 048
  5. MULTI-VITAMINS [Concomitant]
     Route: 065
  6. REVLIMID [Suspect]
     Dosage: 25 MILLIGRAM
     Route: 048
     Dates: start: 20090508
  7. FUROSEMIDE [Concomitant]
     Dosage: 20 MILLIGRAM
     Route: 048
  8. ASCORBIC ACID [Concomitant]
     Dosage: 500 MILLIGRAM
     Route: 048
  9. ZOMETA [Concomitant]
     Dosage: 4 MILLIGRAM
     Route: 051
  10. K-DUR [Concomitant]
     Dosage: 20 MILLIEQUIVALENTS
     Route: 048
  11. METAMUCIL-2 [Concomitant]
     Route: 048

REACTIONS (4)
  - ASTHENIA [None]
  - DIARRHOEA [None]
  - DIZZINESS [None]
  - DEHYDRATION [None]
